FAERS Safety Report 21741742 (Version 3)
Quarter: 2023Q1

REPORT INFORMATION
  Report Type: Spontaneous
  Country: DE (occurrence: DE)
  Receive Date: 20221216
  Receipt Date: 20230105
  Transmission Date: 20230417
  Serious: Yes (Hospitalization)
  Sender: FDA-Public Use
  Company Number: DE-ROCHE-3231365

PATIENT
  Age: 60 Year
  Sex: Female

DRUGS (4)
  1. RITUXIMAB [Suspect]
     Active Substance: RITUXIMAB
     Indication: Diffuse large B-cell lymphoma
     Dosage: 1X/CYCLE
     Route: 042
     Dates: start: 20221115, end: 20221115
  2. ETOPOSIDE [Suspect]
     Active Substance: ETOPOSIDE
     Indication: Diffuse large B-cell lymphoma
     Dosage: 3X/CYCLE
     Route: 042
     Dates: start: 20221115, end: 20221117
  3. IFOSFAMIDE [Suspect]
     Active Substance: IFOSFAMIDE
     Indication: Diffuse large B-cell lymphoma
     Dosage: 2X/CYCLE
     Route: 042
     Dates: start: 20221116, end: 20221117
  4. CARBOPLATIN [Suspect]
     Active Substance: CARBOPLATIN
     Indication: Diffuse large B-cell lymphoma
     Dosage: 1X/CYCLE
     Route: 042
     Dates: start: 20221116, end: 20221116

REACTIONS (4)
  - Mucosal inflammation [Recovered/Resolved]
  - Haematotoxicity [Recovered/Resolved with Sequelae]
  - General physical health deterioration [Recovered/Resolved]
  - Haemoglobin decreased [Unknown]

NARRATIVE: CASE EVENT DATE: 20221118
